FAERS Safety Report 12696911 (Version 1)
Quarter: 2016Q3

REPORT INFORMATION
  Report Type: Spontaneous
  Country: US (occurrence: None)
  Receive Date: 20160829
  Receipt Date: 20160829
  Transmission Date: 20161109
  Serious: Yes (Hospitalization)
  Sender: FDA-Public Use
  Company Number: None

PATIENT
  Age: 65 Year
  Sex: Male

DRUGS (2)
  1. TRACLEER [Concomitant]
     Active Substance: BOSENTAN
  2. ADCIRCA [Suspect]
     Active Substance: TADALAFIL
     Indication: PULMONARY HYPERTENSION
     Dosage: 2 TABS (40MG) QD ORAL
     Route: 048
     Dates: start: 20130107

REACTIONS (1)
  - Lung infection [None]

NARRATIVE: CASE EVENT DATE: 20160818
